FAERS Safety Report 24611611 (Version 1)
Quarter: 2024Q4

REPORT INFORMATION
  Report Type: Report from Study
  Country: PE (occurrence: PE)
  Receive Date: 20241113
  Receipt Date: 20241113
  Transmission Date: 20250115
  Serious: Yes (Other)
  Sender: RANBAXY
  Company Number: PE-SUN PHARMACEUTICAL INDUSTRIES LTD-2024RR-478263

PATIENT
  Age: 34 Month
  Sex: Male

DRUGS (4)
  1. METHYLPREDNISOLONE [Suspect]
     Active Substance: METHYLPREDNISOLONE
     Indication: Obliterative bronchiolitis
     Dosage: 6 A MONTH
     Route: 065
  2. METHYLPREDNISOLONE [Suspect]
     Active Substance: METHYLPREDNISOLONE
     Dosage: 2 A MONTH
  3. AZITHROMYCIN [Suspect]
     Active Substance: AZITHROMYCIN
     Indication: Obliterative bronchiolitis
  4. HYDROXYCHLOROQUINE [Suspect]
     Active Substance: HYDROXYCHLOROQUINE
     Indication: Obliterative bronchiolitis
     Dosage: UNK
     Route: 065

REACTIONS (1)
  - Condition aggravated [Unknown]
